FAERS Safety Report 16279652 (Version 1)
Quarter: 2019Q2

REPORT INFORMATION
  Report Type: Report from Study
  Country: None (occurrence: FI)
  Receive Date: 20190507
  Receipt Date: 20190507
  Transmission Date: 20190711
  Serious: Yes (Hospitalization)
  Sender: FDA-Public Use
  Company Number: FI-ABBVIE-19S-055-2767986-00

PATIENT
  Age: 72 Year
  Sex: Male

DRUGS (1)
  1. DUODOPA [Suspect]
     Active Substance: CARBIDOPA\LEVODOPA
     Indication: PARKINSON^S DISEASE
     Route: 050
     Dates: start: 20190424

REACTIONS (6)
  - Stoma site erythema [Recovered/Resolved]
  - C-reactive protein increased [Recovered/Resolved]
  - Stoma site pain [Recovered/Resolved]
  - Stoma site discharge [Recovered/Resolved]
  - Urinary incontinence [Recovered/Resolved]
  - Stoma site inflammation [Unknown]

NARRATIVE: CASE EVENT DATE: 20190425
